FAERS Safety Report 10175768 (Version 3)
Quarter: 2015Q2

REPORT INFORMATION
  Report Type: Report from Study
  Country: FR (occurrence: FR)
  Receive Date: 20140516
  Receipt Date: 20150429
  Transmission Date: 20150821
  Serious: Yes (Hospitalization, Other)
  Sender: FDA-Public Use
  Company Number: FR-ROCHE-1164283

PATIENT
  Age: 56 Year
  Sex: Female

DRUGS (7)
  1. METHOTREXATE [Concomitant]
     Active Substance: METHOTREXATE
     Route: 065
     Dates: start: 20110819
  2. METHYLPREDNISOLON [Concomitant]
     Active Substance: METHYLPREDNISOLONE
  3. RITUXIMAB [Suspect]
     Active Substance: RITUXIMAB
     Indication: RHEUMATOID ARTHRITIS
     Route: 042
     Dates: start: 20081230, end: 20081230
  4. METHOTREXATE [Concomitant]
     Active Substance: METHOTREXATE
     Dosage: 15MG/WEEKLY
     Route: 065
     Dates: start: 20081230
  5. RITUXIMAB [Suspect]
     Active Substance: RITUXIMAB
     Route: 042
     Dates: start: 20090115, end: 20090115
  6. PARACETAMOL [Concomitant]
     Active Substance: ACETAMINOPHEN
  7. CORTANCYL [Concomitant]
     Active Substance: PREDNISONE

REACTIONS (14)
  - Arachnoid cyst [Recovered/Resolved]
  - Rhinitis [Recovered/Resolved]
  - Cerebral haematoma [Recovered/Resolved]
  - Epilepsy [Unknown]
  - Toothache [Recovered/Resolved]
  - Hypogammaglobulinaemia [Unknown]
  - Infection [Unknown]
  - Infusion related reaction [Recovered/Resolved]
  - Influenza [Recovered/Resolved]
  - Hypertension [Not Recovered/Not Resolved]
  - Headache [Unknown]
  - Vertigo [Unknown]
  - Liver disorder [Unknown]
  - Aphasia [Unknown]

NARRATIVE: CASE EVENT DATE: 20090101
